FAERS Safety Report 8509169-0 (Version None)
Quarter: 2012Q3

REPORT INFORMATION
  Report Type: 
  Country: None (occurrence: None)
  Receive Date: 20120713
  Receipt Date: 20120711
  Transmission Date: 20120928
  Serious: Yes (Other)
  Sender: FDA-Public Use
  Company Number: US-GLAXOSMITHKLINE-Z0015523A

PATIENT
  Age: 57 Year
  Sex: Male
  Weight: 109 kg

DRUGS (3)
  1. PAZOPANIB [Suspect]
     Indication: RENAL CELL CARCINOMA
     Dosage: 600MG PER DAY
     Route: 048
     Dates: start: 20120413
  2. ACETAMINOPHEN [Concomitant]
     Indication: PAIN
     Dosage: 500MG AS REQUIRED
     Route: 048
  3. MULTI-VITAMINS [Concomitant]
     Indication: SUPPLEMENTATION THERAPY
     Dosage: 2TAB PER DAY
     Route: 048

REACTIONS (1)
  - POLYCYTHAEMIA [None]
